FAERS Safety Report 6546995-1 (Version None)
Quarter: 2010Q1

REPORT INFORMATION
  Report Type: 
  Country: None (occurrence: None)
  Receive Date: 20100122
  Receipt Date: 20100115
  Transmission Date: 20100710
  Serious: Yes (Hospitalization)
  Sender: FDA-Public Use
  Company Number: B0528635B

PATIENT
  Sex: Female
  Weight: 76.9 kg

DRUGS (2)
  1. LAPATINIB [Suspect]
     Dosage: 1250MG PER DAY
     Route: 048
     Dates: start: 20080123
  2. CAPECITABINE [Suspect]
     Dosage: 500MGM2 TWICE PER DAY
     Route: 048
     Dates: start: 20080123

REACTIONS (4)
  - ANGINA PECTORIS [None]
  - DYSPNOEA [None]
  - PALPITATIONS [None]
  - TACHYPNOEA [None]
